FAERS Safety Report 5368665-8 (Version None)
Quarter: 2007Q2

REPORT INFORMATION
  Report Type: 
  Country: None (occurrence: None)
  Receive Date: 20070625
  Receipt Date: 20070307
  Transmission Date: 20071010
  Serious: No
  Sender: FDA-Public Use
  Company Number: US-BRISTOL-MYERS SQUIBB COMPANY-13668967

PATIENT
  Age: 56 Year
  Sex: Female
  Weight: 86 kg

DRUGS (5)
  1. ORENCIA [Suspect]
     Indication: RHEUMATOID ARTHRITIS
     Route: 042
     Dates: start: 20070130
  2. MEDROL [Concomitant]
  3. VICODIN [Concomitant]
  4. XANAX [Concomitant]
  5. COLESTID [Concomitant]

REACTIONS (5)
  - ARTHRALGIA [None]
  - DIZZINESS [None]
  - NAUSEA [None]
  - PHARYNGOLARYNGEAL PAIN [None]
  - VOMITING [None]
